FAERS Safety Report 8859150 (Version 1)
Quarter: 2012Q4

REPORT INFORMATION
  Report Type: 
  Country: US (occurrence: US)
  Receive Date: 20121024
  Receipt Date: 20121024
  Transmission Date: 20130627
  Serious: Yes (Hospitalization)
  Sender: FDA-Public Use
  Company Number: US-FRI-1000039717

PATIENT
  Sex: Female

DRUGS (1)
  1. CITALOPRAM [Suspect]

REACTIONS (3)
  - Arrhythmia [Unknown]
  - Adverse drug reaction [Unknown]
  - Hypersensitivity [Unknown]
